FAERS Safety Report 14549596 (Version 2)
Quarter: 2018Q2

REPORT INFORMATION
  Report Type: Spontaneous
  Country: FR (occurrence: FR)
  Receive Date: 20180219
  Receipt Date: 20180413
  Transmission Date: 20180711
  Serious: Yes (Congenital Anomaly, Other)
  Sender: FDA-Public Use
  Company Number: PHHY2018FR006294

PATIENT
  Sex: Male

DRUGS (6)
  1. BARACLUDE [Suspect]
     Active Substance: ENTECAVIR
     Dosage: MATERNAL DOSE: 0.5 MG, QD
     Route: 064
     Dates: start: 20150101, end: 20150311
  2. TENOFOVIR DISOPROXIL [Suspect]
     Active Substance: TENOFOVIR DISOPROXIL
     Indication: FOETAL EXPOSURE DURING PREGNANCY
     Dosage: MATERNAL DOSE 245 MG, QD
     Route: 064
     Dates: start: 20150311, end: 20150705
  3. EMTRICITABINE+TENOFOVIR [Suspect]
     Active Substance: EMTRICITABINE\TENOFOVIR
     Dosage: MATERNAL DOSE: 245 MG, QD
     Route: 064
     Dates: start: 20150705
  4. BARACLUDE [Suspect]
     Active Substance: ENTECAVIR
     Indication: FOETAL EXPOSURE DURING PREGNANCY
     Dosage: MATERNAL DOSE: 0.5 MG, QD
     Route: 064
     Dates: start: 20111007
  5. ENTECAVIR. [Suspect]
     Active Substance: ENTECAVIR
     Indication: FOETAL EXPOSURE DURING PREGNANCY
     Dosage: UNK
     Route: 064
     Dates: start: 20111007, end: 20150311
  6. EMTRICITABINE+TENOFOVIR [Suspect]
     Active Substance: EMTRICITABINE\TENOFOVIR
     Indication: FOETAL EXPOSURE DURING PREGNANCY
     Dosage: MATERNAL DOSE: 245 MG, QD
     Route: 064
     Dates: start: 20150311

REACTIONS (4)
  - Neonatal respiratory distress [Unknown]
  - Foetal heart rate abnormal [Unknown]
  - Foetal exposure during pregnancy [Unknown]
  - Foetal hypokinesia [Unknown]
